FAERS Safety Report 4471411-3 (Version None)
Quarter: 2004Q4

REPORT INFORMATION
  Report Type: 
  Country: None (occurrence: None)
  Receive Date: 20041006
  Receipt Date: 20041006
  Transmission Date: 20050328
  Serious: No
  Sender: FDA-Public Use
  Company Number: None

PATIENT
  Sex: Female
  Weight: 90.7194 kg

DRUGS (1)
  1. TUBERCULIN PURIFIED PROTEIN DERIVATIVE / AVENTIS [Suspect]
     Indication: TUBERCULIN TEST
     Dosage: (0.1ML) 1D

REACTIONS (3)
  - CHEST DISCOMFORT [None]
  - DYSGEUSIA [None]
  - HYPOAESTHESIA ORAL [None]
